FAERS Safety Report 20967975 (Version 2)
Quarter: 2022Q3

REPORT INFORMATION
  Report Type: Spontaneous
  Country: US (occurrence: US)
  Receive Date: 20220616
  Receipt Date: 20220702
  Transmission Date: 20221027
  Serious: Yes (Other)
  Sender: FDA-Public Use
  Company Number: US-TEVA-2022-US-2045470

PATIENT
  Age: 1 Year
  Sex: Female

DRUGS (4)
  1. PAMIDRONATE [Suspect]
     Active Substance: PAMIDRONATE DISODIUM
     Indication: Gorham^s disease
     Route: 065
     Dates: start: 2014
  2. ZOLEDRONIC ACID [Suspect]
     Active Substance: ZOLEDRONIC ACID
     Indication: Gorham^s disease
     Route: 065
  3. SIROLIMUS [Suspect]
     Active Substance: SIROLIMUS
     Indication: Gorham^s disease
     Route: 065
     Dates: start: 2014
  4. VINCRISTINE [Concomitant]
     Active Substance: VINCRISTINE
     Indication: Gorham^s disease
     Route: 065

REACTIONS (4)
  - Drug ineffective [Unknown]
  - Hypertriglyceridaemia [Recovered/Resolved]
  - Mucosal inflammation [Recovered/Resolved]
  - Blood parathyroid hormone increased [Recovered/Resolved]
